FAERS Safety Report 15727645 (Version 1)
Quarter: 2018Q4

REPORT INFORMATION
  Report Type: Spontaneous
  Country: US (occurrence: US)
  Receive Date: 20181217
  Receipt Date: 20181217
  Transmission Date: 20190205
  Serious: No
  Sender: FDA-Public Use
  Company Number: US-NOVEN PHARMACEUTICALS, INC.-US2018000218

PATIENT

DRUGS (3)
  1. MINIVELLE [Suspect]
     Active Substance: ESTRADIOL
     Indication: NIGHT SWEATS
  2. PROGESTERONE. [Concomitant]
     Active Substance: PROGESTERONE
  3. MINIVELLE [Suspect]
     Active Substance: ESTRADIOL
     Indication: HOT FLUSH
     Dosage: 0.075 MG, UNKNOWN
     Route: 062

REACTIONS (3)
  - Wrong technique in product usage process [Unknown]
  - Product adhesion issue [Recovering/Resolving]
  - Hot flush [Unknown]
